FAERS Safety Report 16759834 (Version 1)
Quarter: 2019Q3

REPORT INFORMATION
  Report Type: Spontaneous
  Country: BR (occurrence: BR)
  Receive Date: 20190830
  Receipt Date: 20190830
  Transmission Date: 20191005
  Serious: Yes (Other)
  Sender: FDA-Public Use
  Company Number: BR-PFIZER INC-2019367726

PATIENT
  Sex: Female

DRUGS (4)
  1. FRONTAL [Suspect]
     Active Substance: ALPRAZOLAM
     Indication: GENERALISED ANXIETY DISORDER
     Dosage: 1 MG, UNK
  2. BRENTUXIMAB [Suspect]
     Active Substance: BRENTUXIMAB VEDOTIN
     Dosage: UNK, EVERY 21 DAYS (CYCLIC)
  3. PAROXETINE. [Suspect]
     Active Substance: PAROXETINE
     Dosage: 60 MG, UNK
  4. RIVOTRIL [Suspect]
     Active Substance: CLONAZEPAM
     Dosage: 3 MG, UNK

REACTIONS (1)
  - White blood cell count decreased [Recovering/Resolving]
